FAERS Safety Report 14197795 (Version 2)
Quarter: 2017Q4

REPORT INFORMATION
  Report Type: Spontaneous
  Country: US (occurrence: US)
  Receive Date: 20171117
  Receipt Date: 20171121
  Transmission Date: 20180321
  Serious: No
  Sender: FDA-Public Use
  Company Number: US-AMGEN-USASP2017171982

PATIENT
  Age: 23 Year
  Sex: Female

DRUGS (1)
  1. ENBREL [Suspect]
     Active Substance: ETANERCEPT
     Indication: RHEUMATOID ARTHRITIS
     Dosage: 50 MG, QWK
     Route: 058
     Dates: start: 20170321

REACTIONS (5)
  - Nervousness [Unknown]
  - Wrong technique in product usage process [Unknown]
  - Headache [Unknown]
  - Anxiety [Unknown]
  - Stress [Unknown]

NARRATIVE: CASE EVENT DATE: 2017
